FAERS Safety Report 16549113 (Version 1)
Quarter: 2019Q3

REPORT INFORMATION
  Report Type: Other
  Country: CN (occurrence: CN)
  Receive Date: 20190709
  Receipt Date: 20190709
  Transmission Date: 20191004
  Serious: Yes (Other)
  Sender: FDA-Public Use
  Company Number: CN-AGG-09-2017-1579

PATIENT

DRUGS (8)
  1. TICAGRELOR. [Concomitant]
     Active Substance: TICAGRELOR
     Route: 048
  2. AGGRASTAT [Suspect]
     Active Substance: TIROFIBAN HYDROCHLORIDE
     Indication: ANTIPLATELET THERAPY
     Dosage: 0.15 MCG/KG/MIN FOR 48 H
     Route: 041
  3. HEPARIN [Concomitant]
     Active Substance: HEPARIN SODIUM
     Dosage: BEFORE PERFORMING PRIMARY PCI
  4. AGGRASTAT [Suspect]
     Active Substance: TIROFIBAN HYDROCHLORIDE
     Indication: ANTIPLATELET THERAPY
     Route: 022
  5. ASPIRIN. [Concomitant]
     Active Substance: ASPIRIN
     Route: 048
  6. HEPARIN [Concomitant]
     Active Substance: HEPARIN SODIUM
     Dosage: BEFORE CORONARY ANGIOGRAPHY
  7. ASPIRIN. [Concomitant]
     Active Substance: ASPIRIN
     Route: 048
  8. TICAGRELOR. [Concomitant]
     Active Substance: TICAGRELOR

REACTIONS (1)
  - Haemorrhage [Unknown]
